FAERS Safety Report 14916529 (Version 1)
Quarter: 2018Q2

REPORT INFORMATION
  Report Type: Spontaneous
  Country: FR (occurrence: FR)
  Receive Date: 20180519
  Receipt Date: 20180519
  Transmission Date: 20180711
  Serious: Yes (Other)
  Sender: FDA-Public Use
  Company Number: FR-AUROBINDO-AUR-APL-2018-026142

PATIENT
  Age: 66 Year
  Sex: Female

DRUGS (3)
  1. XATRAL                             /00975301/ [Concomitant]
     Active Substance: ALFUZOSIN
     Indication: DYSURIA
     Dosage: NON COMMUNIQUEE
     Route: 048
     Dates: start: 20170301, end: 20170314
  2. ALPRAZOLAM. [Suspect]
     Active Substance: ALPRAZOLAM
     Indication: DEPRESSION
     Dosage: NON COMMUNIQUEE
     Route: 048
     Dates: start: 201702, end: 20170314
  3. MYCOSTATINE [Concomitant]
     Active Substance: NYSTATIN
     Indication: FUNGAL INFECTION
     Dosage: NON COMMUNIQUEE
     Route: 048
     Dates: start: 201702, end: 20170313

REACTIONS (1)
  - Neutropenia [Recovered/Resolved]

NARRATIVE: CASE EVENT DATE: 20170314
